FAERS Safety Report 8492807-9 (Version None)
Quarter: 2012Q3

REPORT INFORMATION
  Report Type: 
  Country: None (occurrence: None)
  Receive Date: 20120706
  Receipt Date: 20120622
  Transmission Date: 20120928
  Serious: Yes (Death, Hospitalization)
  Sender: FDA-Public Use
  Company Number: JP-MYLANLABS-2012S1013087

PATIENT
  Age: 54 Year
  Sex: Male

DRUGS (2)
  1. PHENYTOIN [Suspect]
     Indication: CONVULSION
     Route: 048
     Dates: start: 20101202
  2. OMEPRAZOLE [Suspect]
     Route: 065
     Dates: start: 20110312

REACTIONS (3)
  - TOXIC EPIDERMAL NECROLYSIS [None]
  - DRUG RASH WITH EOSINOPHILIA AND SYSTEMIC SYMPTOMS [None]
  - MULTI-ORGAN FAILURE [None]
